FAERS Safety Report 12689189 (Version 1)
Quarter: 2016Q3

REPORT INFORMATION
  Report Type: Spontaneous
  Country: DE (occurrence: DE)
  Receive Date: 20160826
  Receipt Date: 20160826
  Transmission Date: 20161109
  Serious: Yes (Death, Other)
  Sender: FDA-Public Use
  Company Number: DE-ROCHE-1820976

PATIENT
  Age: 77 Year
  Sex: Female

DRUGS (1)
  1. AVASTIN [Suspect]
     Active Substance: BEVACIZUMAB
     Indication: DIABETIC RETINAL OEDEMA
     Route: 031
     Dates: start: 20140415, end: 20160712

REACTIONS (7)
  - Acute myocardial infarction [Fatal]
  - Respiratory distress [Fatal]
  - Dizziness [Unknown]
  - Abdominal pain [Unknown]
  - Off label use [Fatal]
  - Product use issue [Fatal]
  - Nausea [Unknown]

NARRATIVE: CASE EVENT DATE: 20160717
